FAERS Safety Report 5673745-3 (Version None)
Quarter: 2008Q1

REPORT INFORMATION
  Report Type: 
  Country: None (occurrence: None)
  Receive Date: 20080319
  Receipt Date: 20080307
  Transmission Date: 20080703
  Serious: Yes (Hospitalization)
  Sender: FDA-Public Use
  Company Number: CA-PFIZER INC-2008005692

PATIENT
  Sex: Male
  Weight: 66 kg

DRUGS (8)
  1. SU-011,248 [Suspect]
     Indication: RENAL CELL CARCINOMA
     Route: 048
  2. SU-011,248 [Suspect]
     Route: 048
     Dates: start: 20061107, end: 20080108
  3. LIPITOR [Concomitant]
     Route: 048
  4. RAMIPRIL [Concomitant]
     Route: 048
  5. ZANTAC [Concomitant]
     Route: 048
  6. LEVOTHYROXINE SODIUM [Concomitant]
     Route: 048
  7. HYDROCHLOROTHIAZIDE [Concomitant]
     Route: 048
  8. LOPERAMIDE HCL [Concomitant]
     Route: 048

REACTIONS (1)
  - LUNG INFILTRATION [None]
